FAERS Safety Report 4408598-4 (Version None)
Quarter: 2004Q3

REPORT INFORMATION
  Report Type: 
  Country: None (occurrence: None)
  Receive Date: 20040723
  Receipt Date: 20040708
  Transmission Date: 20050211
  Serious: Yes (Hospitalization)
  Sender: FDA-Public Use
  Company Number: 2004-BP-04576AU

PATIENT
  Age: 65 Year
  Sex: Female

DRUGS (1)
  1. CATAPRES [Suspect]
     Indication: PAIN
     Dosage: MCG (MCG, ONE PATCH, EVERY THIRD DAY) TD
     Route: 062

REACTIONS (2)
  - EPILEPSY [None]
  - OFF LABEL USE [None]
